FAERS Safety Report 15009541 (Version 1)
Quarter: 2018Q2

REPORT INFORMATION
  Report Type: Spontaneous
  Country: BA (occurrence: BA)
  Receive Date: 20180614
  Receipt Date: 20180614
  Transmission Date: 20180711
  Serious: Yes (Life-Threatening, Other)
  Sender: FDA-Public Use
  Company Number: BA-ROCHE-2137383

PATIENT
  Sex: Male
  Weight: 75 kg

DRUGS (5)
  1. DOXORUBICIN [Concomitant]
     Active Substance: DOXORUBICIN
     Indication: NON-HODGKIN^S LYMPHOMA
     Route: 042
     Dates: start: 20180531, end: 20180531
  2. ETOPOSIDE. [Concomitant]
     Active Substance: ETOPOSIDE
     Route: 042
     Dates: start: 20180531, end: 20180531
  3. RITUXIMAB. [Suspect]
     Active Substance: RITUXIMAB
     Indication: NON-HODGKIN^S LYMPHOMA
     Dosage: ON THE 21ST DAY
     Route: 042
     Dates: start: 20180531
  4. VINCRISTIN [Concomitant]
     Active Substance: VINCRISTINE
     Indication: NON-HODGKIN^S LYMPHOMA
     Route: 042
     Dates: start: 20180531, end: 20180531
  5. METHYLPREDNISOLONE. [Concomitant]
     Active Substance: METHYLPREDNISOLONE
     Indication: NON-HODGKIN^S LYMPHOMA
     Route: 042
     Dates: start: 20180523, end: 20180531

REACTIONS (2)
  - Acute coronary syndrome [Recovered/Resolved]
  - Urticaria [Recovered/Resolved]

NARRATIVE: CASE EVENT DATE: 20180531
